FAERS Safety Report 12840025 (Version 3)
Quarter: 2016Q4

REPORT INFORMATION
  Report Type: Report from Study
  Country: US (occurrence: US)
  Receive Date: 20161012
  Receipt Date: 20161214
  Transmission Date: 20170207
  Serious: Yes (Hospitalization)
  Sender: FDA-Public Use
  Company Number: US-GILEAD-2016-0230585

PATIENT
  Age: 47 Year
  Sex: Female
  Weight: 90 kg

DRUGS (4)
  1. AMBRISENTAN [Suspect]
     Active Substance: AMBRISENTAN
     Indication: PRODUCT USED FOR UNKNOWN INDICATION
     Dosage: 10 MG, QD
     Route: 065
     Dates: start: 20150803
  2. ADCIRCA [Concomitant]
     Active Substance: TADALAFIL
  3. VELETRI [Concomitant]
     Active Substance: EPOPROSTENOL
  4. ORENITRAM [Concomitant]
     Active Substance: TREPROSTINIL

REACTIONS (2)
  - Hypertension [Not Recovered/Not Resolved]
  - Catheterisation cardiac [Recovered/Resolved]

NARRATIVE: CASE EVENT DATE: 20160823
